FAERS Safety Report 9520617 (Version 3)
Quarter: 2014Q2

REPORT INFORMATION
  Report Type: Spontaneous
  Country: BR (occurrence: BR)
  Receive Date: 20130913
  Receipt Date: 20140508
  Transmission Date: 20141212
  Serious: Yes (Hospitalization, Other)
  Sender: FDA-Public Use
  Company Number: BR-ASTRAZENECA-2011SE33142

PATIENT
  Age: 59 Year
  Sex: Female
  Weight: 84 kg

DRUGS (15)
  1. BLOPRESS PLUS [Suspect]
     Indication: HYPERTENSION
     Route: 048
     Dates: start: 2002, end: 2009
  2. BLOPRESS [Suspect]
     Indication: HYPERTENSION
     Route: 048
     Dates: start: 2009, end: 2009
  3. SELOKEN [Suspect]
     Route: 048
     Dates: end: 2009
  4. SELOKEN [Suspect]
     Route: 048
     Dates: start: 2009
  5. PRINIVIL [Suspect]
     Indication: HYPERTENSION
     Route: 048
     Dates: end: 2009
  6. SIMVASTATIN [Concomitant]
     Indication: HYPERCHOLESTEROLAEMIA
     Route: 048
     Dates: start: 2010
  7. FLUOXETINE [Concomitant]
     Indication: ANXIETY
     Dosage: ONCE DAILY
     Route: 048
  8. BROMAZEPAM [Concomitant]
     Indication: ANXIETY
     Route: 048
  9. MODURETIC [Concomitant]
     Indication: HYPERTENSION
     Route: 048
  10. ATENSINA [Concomitant]
     Dosage: 150 MG, 1/2 TABLET PER DAY
     Route: 048
  11. XALATAN [Concomitant]
     Indication: OCULAR HYPERTENSION
     Route: 031
  12. METFORMIN [Concomitant]
     Indication: DIABETES MELLITUS
     Route: 048
  13. LOPID [Concomitant]
     Dates: end: 2010
  14. ATACAND [Concomitant]
     Indication: HYPERTENSION
     Route: 048
     Dates: start: 2009
  15. PURAN T4 [Concomitant]
     Dosage: UNK
     Dates: start: 2006

REACTIONS (6)
  - Thyroid cancer [Recovered/Resolved]
  - Neoplasm recurrence [Recovered/Resolved]
  - Hypertriglyceridaemia [Unknown]
  - Tachycardia [Recovered/Resolved]
  - Weight increased [Unknown]
  - Cough [Recovered/Resolved]
